FAERS Safety Report 9387625 (Version 2)
Quarter: 2013Q4

REPORT INFORMATION
  Report Type: Spontaneous
  Country: US (occurrence: US)
  Receive Date: 20130708
  Receipt Date: 20131015
  Transmission Date: 20140711
  Serious: Yes (Hospitalization, Other)
  Sender: FDA-Public Use
  Company Number: US-SANOFI-AVENTIS-2013SA050749

PATIENT
  Age: 56 Year
  Sex: Female
  Weight: 83 kg

DRUGS (14)
  1. AUBAGIO [Suspect]
     Indication: MULTIPLE SCLEROSIS
     Route: 048
     Dates: start: 2013, end: 20130524
  2. TRAMADOL HYDROCHLORIDE [Concomitant]
     Route: 048
  3. LEVOTHYROXINE [Concomitant]
     Route: 048
  4. METFORMIN [Concomitant]
     Route: 048
  5. OMEPRAZOLE [Concomitant]
     Route: 048
  6. ASPIRIN [Concomitant]
     Route: 048
  7. INDERAL [Concomitant]
     Route: 048
  8. FLUOXETINE [Concomitant]
     Route: 048
  9. KLONOPIN [Concomitant]
     Route: 048
  10. VICODIN [Concomitant]
     Route: 048
  11. ADVAIR DISKUS [Concomitant]
     Route: 065
  12. ALBUTEROL [Concomitant]
     Route: 065
  13. LORATADINE [Concomitant]
     Route: 048
  14. VITAMIN D [Concomitant]
     Route: 048

REACTIONS (10)
  - Gallbladder disorder [Unknown]
  - Pyrexia [Recovered/Resolved]
  - Vomiting [Recovered/Resolved]
  - Diarrhoea [Recovered/Resolved]
  - Nausea [Recovered/Resolved]
  - Pain in extremity [Recovered/Resolved]
  - Pain [Not Recovered/Not Resolved]
  - Alopecia [Not Recovered/Not Resolved]
  - Paraesthesia [Not Recovered/Not Resolved]
  - Urinary tract infection [Recovered/Resolved]
